FAERS Safety Report 12232581 (Version 2)
Quarter: 2016Q2

REPORT INFORMATION
  Report Type: Spontaneous
  Country: US (occurrence: US)
  Receive Date: 20160401
  Receipt Date: 20160401
  Transmission Date: 20160815
  Serious: No
  Sender: FDA-Public Use
  Company Number: US-ELI_LILLY_AND_COMPANY-US201603008730

PATIENT
  Sex: Male

DRUGS (3)
  1. LANTUS [Concomitant]
     Active Substance: INSULIN GLARGINE
     Indication: PRODUCT USED FOR UNKNOWN INDICATION
     Dosage: UNK, UNKNOWN
     Route: 065
  2. HUMALOG [Suspect]
     Active Substance: INSULIN LISPRO
     Indication: TYPE 1 DIABETES MELLITUS
     Dosage: 37 U, QD
     Route: 065
     Dates: start: 201410
  3. HUMALOG [Suspect]
     Active Substance: INSULIN LISPRO
     Dosage: 37 U, QD
     Route: 065
     Dates: start: 201410

REACTIONS (4)
  - Blood glucose decreased [Unknown]
  - Blood glucose increased [Unknown]
  - Intentional product misuse [Unknown]
  - Drug ineffective [Unknown]
